FAERS Safety Report 24722363 (Version 1)
Quarter: 2024Q4

REPORT INFORMATION
  Report Type: Spontaneous
  Country: RU (occurrence: RU)
  Receive Date: 20241211
  Receipt Date: 20241211
  Transmission Date: 20250114
  Serious: Yes (Other)
  Sender: SANDOZ
  Company Number: RU-002147023-NVSC2024RU233741

PATIENT
  Age: 55 Year
  Sex: Female

DRUGS (5)
  1. RIBOCICLIB [Suspect]
     Active Substance: RIBOCICLIB
     Indication: Product used for unknown indication
     Dosage: 600 MG, QD
     Route: 065
     Dates: start: 202201, end: 202310
  2. RIBOCICLIB [Suspect]
     Active Substance: RIBOCICLIB
     Dosage: 600 MG, QD, ON DAYS 1-21, IN 28-DAY CYCLES
     Route: 065
     Dates: start: 20240621
  3. ZOLEDRONIC ACID [Suspect]
     Active Substance: ZOLEDRONIC ACID
     Indication: Product used for unknown indication
     Dosage: 4 MG, ONCE IN 6 MONTHS
     Route: 065
     Dates: start: 202201, end: 202310
  4. ANASTROZOLE [Concomitant]
     Active Substance: ANASTROZOLE
     Indication: Product used for unknown indication
     Dosage: UNK
     Route: 065
     Dates: end: 202310
  5. FULVESTRANT [Concomitant]
     Active Substance: FULVESTRANT
     Indication: Product used for unknown indication
     Dosage: 500 MG (ONCE PER 28 DAYS)
     Route: 030

REACTIONS (4)
  - Colitis ulcerative [Recovering/Resolving]
  - Gastric ulcer [Recovering/Resolving]
  - Osteosclerosis [Not Recovered/Not Resolved]
  - Breast neoplasm [Not Recovered/Not Resolved]

NARRATIVE: CASE EVENT DATE: 20230621
